FAERS Safety Report 10749278 (Version 2)
Quarter: 2015Q2

REPORT INFORMATION
  Report Type: Spontaneous
  Country: US (occurrence: US)
  Receive Date: 20150129
  Receipt Date: 20150401
  Transmission Date: 20150821
  Serious: Yes (Other)
  Sender: FDA-Public Use
  Company Number: US-PFIZER INC-2014311456

PATIENT
  Age: 67 Year
  Sex: Male
  Weight: 89.8 kg

DRUGS (15)
  1. SUTENT [Suspect]
     Active Substance: SUNITINIB MALATE
     Dosage: 12.5 UNK, UNK (FOR 4 WEEKS ON, 2 WEEKS OFF ^IN ADDITION TO 25 MG CAP TO MAKE 37.5 MG TOTAL^)
     Route: 048
     Dates: start: 20141028
  2. TOPROL XL [Concomitant]
     Active Substance: METOPROLOL SUCCINATE
     Dosage: 100 MG, 1X/DAY (1.5 TABS BY MOUTH ONE TIME A DAY. DO NOT CRUSH OR CHEW)
     Route: 048
  3. ZOCOR [Concomitant]
     Active Substance: SIMVASTATIN
     Dosage: 40 MG, UNK
     Route: 048
  4. NORVASC [Suspect]
     Active Substance: AMLODIPINE BESYLATE
     Indication: HYPERTENSION
     Dosage: 10 MG, 1X/DAY
     Route: 048
  5. ATACAND [Concomitant]
     Active Substance: CANDESARTAN CILEXETIL
     Indication: HYPERTENSION
     Dosage: 16 MG, 1X/DAY
     Route: 048
  6. PRILOSEC [Concomitant]
     Active Substance: OMEPRAZOLE MAGNESIUM
     Dosage: 20 MG, 1X/DAY (TAKE BEFORE MEALS. DO NOT CRUSH.)
     Route: 048
  7. SUTENT [Suspect]
     Active Substance: SUNITINIB MALATE
     Dosage: 25 MG, 1X/DAY (FOR 4 WEEKS ON, 2 WEEKS OFF ^IN ADDITION TO 12.5 MG CAP TO MAKE 37.5 MG TOTAL^)
     Route: 048
     Dates: start: 20141028
  8. HYDROCHLOROTHIAZIDE. [Concomitant]
     Active Substance: HYDROCHLOROTHIAZIDE
     Dosage: 25 MG, 1X/DAY
     Route: 048
  9. PERCOCET [Concomitant]
     Active Substance: ACETAMINOPHEN\OXYCODONE HYDROCHLORIDE
     Indication: PAIN
     Dosage: UNK UNK, AS NEEDED (OXYCODONE: 5 MG/ ACETAMINOPHEN: 325 MG), 1-2 TABS EVERY 4 HRS AS NEEDED FOR PAIN
     Route: 048
  10. CHOLECALCIFEROL [Concomitant]
     Active Substance: CHOLECALCIFEROL
     Dosage: 200 IU, 1X/DAY
     Route: 048
  11. HYTRIN [Concomitant]
     Active Substance: TERAZOSIN HYDROCHLORIDE
     Dosage: 2 MG, UNK (1 CAP BY MOUTH AT BED TIME)
     Route: 048
  12. SUTENT [Suspect]
     Active Substance: SUNITINIB MALATE
     Indication: RENAL CANCER
     Dosage: 37.5 MG, UNK  (1 CAP OF 25 MG AND 1 CAP 12.5 MG TO EQUAL 37.5) (37.5 MG X 4 WKS OFF X 2)
     Route: 048
  13. CALMOSEPTINE [Concomitant]
     Active Substance: MENTHOL\ZINC OXIDE
     Dosage: UNK ( MENTHOL :0.44/ ZINC OXIDE: 20.625 %)
  14. COMPAZINE [Concomitant]
     Active Substance: PROCHLORPERAZINE MALEATE
     Dosage: 10 MG, 3X/DAY
     Route: 048
  15. SYNTHROID [Concomitant]
     Active Substance: LEVOTHYROXINE SODIUM
     Dosage: 100 ?G, 1X/DAY
     Route: 048

REACTIONS (1)
  - Pharyngeal oedema [Recovered/Resolved]
